FAERS Safety Report 4443579-6 (Version None)
Quarter: 2004Q3

REPORT INFORMATION
  Report Type: 
  Country: None (occurrence: None)
  Receive Date: 20040903
  Receipt Date: 20040823
  Transmission Date: 20050211
  Serious: Yes (Hospitalization)
  Sender: FDA-Public Use
  Company Number: 2004UW17783

PATIENT
  Age: 77 Year
  Sex: Male

DRUGS (14)
  1. CRESTOR [Suspect]
     Dosage: 10 MG PO
     Route: 048
  2. PRILOSEC [Suspect]
     Dosage: 20 MG
  3. NAMENDA [Concomitant]
  4. ELAVIL [Concomitant]
  5. ZETIA [Concomitant]
  6. LANOXIN [Concomitant]
  7. SPIRONOLACTONE [Concomitant]
  8. LASIX [Concomitant]
  9. PLAVIX [Concomitant]
  10. COMBIVENT [Concomitant]
  11. BECONASE [Concomitant]
  12. ADVAIR DISKUS 100/50 [Concomitant]
  13. POTASSIUM [Concomitant]
  14. NABUMETONE [Concomitant]

REACTIONS (3)
  - ALANINE AMINOTRANSFERASE INCREASED [None]
  - ASPARTATE AMINOTRANSFERASE INCREASED [None]
  - RHABDOMYOLYSIS [None]
